FAERS Safety Report 9215466 (Version 1)
Quarter: 2013Q2

REPORT INFORMATION
  Report Type: Spontaneous
  Country: TR (occurrence: TR)
  Receive Date: 20130406
  Receipt Date: 20130406
  Transmission Date: 20140414
  Serious: Yes (Hospitalization)
  Sender: FDA-Public Use
  Company Number: TR-ACCORD-017139

PATIENT
  Age: 10 Month
  Sex: Female
  Weight: 10 kg

DRUGS (5)
  1. LEVETIRACETAM [Suspect]
     Dosage: ACCIDENTALLY ADMINISTERED 10 TIMES THE RECOMMENDED DOSE
  2. VITAMIN B6 [Concomitant]
  3. TOPIRAMATE [Concomitant]
  4. VIGABATRIN [Concomitant]
  5. CALCIUM FOLINATE [Concomitant]

REACTIONS (3)
  - Accidental overdose [Recovered/Resolved]
  - Apathy [Recovered/Resolved]
  - Hypotonia [Unknown]
